FAERS Safety Report 7312131-7 (Version None)
Quarter: 2011Q1

REPORT INFORMATION
  Report Type: 
  Country: None (occurrence: None)
  Receive Date: 20110224
  Receipt Date: 20110222
  Transmission Date: 20110831
  Serious: No
  Sender: FDA-Public Use
  Company Number: US-PFIZER INC-2011039364

PATIENT
  Sex: Female
  Weight: 79.365 kg

DRUGS (6)
  1. CELEBREX [Suspect]
     Indication: OSTEOARTHRITIS
     Dosage: 200 MG, 1X/DAY
     Route: 048
     Dates: start: 20110101
  2. PAXIL [Concomitant]
     Indication: DEPRESSION
     Dosage: 20 MG, 1X/DAY
     Route: 048
  3. BENICAR [Concomitant]
     Indication: HYPERTENSION
     Dosage: 20 MG, 1X/DAY
     Route: 048
  4. CELEBREX [Suspect]
     Indication: ARTHRALGIA
  5. CRESTOR [Concomitant]
     Indication: BLOOD CHOLESTEROL ABNORMAL
     Dosage: 5 MG, 1X/DAY
     Route: 048
  6. BUSPAR [Concomitant]
     Indication: ANXIETY
     Dosage: 15 MG, 2X/DAY
     Route: 048

REACTIONS (1)
  - ALOPECIA [None]
